FAERS Safety Report 12457722 (Version 4)
Quarter: 2016Q3

REPORT INFORMATION
  Report Type: Spontaneous
  Country: GB (occurrence: GB)
  Receive Date: 20160611
  Receipt Date: 20160901
  Transmission Date: 20161109
  Serious: Yes (Other)
  Sender: FDA-Public Use
  Company Number: GB-ACCORD-041237

PATIENT
  Age: 36 Year
  Sex: Male
  Weight: 73 kg

DRUGS (5)
  1. QUETIAPINE. [Suspect]
     Active Substance: QUETIAPINE
     Indication: BIPOLAR I DISORDER
     Route: 048
     Dates: start: 20120201
  2. DOVOBET [Suspect]
     Active Substance: BETAMETHASONE\CALCIPOTRIENE
     Indication: PRURITUS
  3. DOVONEX [Suspect]
     Active Substance: CALCIPOTRIENE
     Indication: PRURITUS
  4. PINEWOOD LABS KETOPINE [Suspect]
     Active Substance: KETOCONAZOLE
     Indication: PRODUCT USED FOR UNKNOWN INDICATION
     Dates: start: 2012
  5. COLECALCIFEROL [Concomitant]
     Active Substance: CHOLECALCIFEROL
     Dates: start: 201511

REACTIONS (4)
  - Guttate psoriasis [Not Recovered/Not Resolved]
  - Blood cholesterol increased [Unknown]
  - Psoriasis [Unknown]
  - Vitamin D decreased [Unknown]

NARRATIVE: CASE EVENT DATE: 20120404
